FAERS Safety Report 23706317 (Version 1)
Quarter: 2024Q2

REPORT INFORMATION
  Report Type: Spontaneous
  Country: US (occurrence: None)
  Receive Date: 20240404
  Receipt Date: 20240404
  Transmission Date: 20240716
  Serious: Yes (Other)
  Sender: FDA-Public Use
  Company Number: US-ARIS GLOBAL-RDH202403-000016

PATIENT
  Sex: Female

DRUGS (1)
  1. AEMCOLO [Suspect]
     Active Substance: RIFAMYCIN
     Indication: Product used for unknown indication
     Dosage: UNK
     Route: 065

REACTIONS (1)
  - Mycobacterium avium complex infection [Unknown]
